FAERS Safety Report 17656330 (Version 2)
Quarter: 2020Q2

REPORT INFORMATION
  Report Type: Report from Study
  Country: FR (occurrence: FR)
  Receive Date: 20200410
  Receipt Date: 20200416
  Transmission Date: 20200713
  Serious: Yes (Other)
  Sender: FDA-Public Use
  Company Number: FR-EMD SERONO-9156386

PATIENT
  Age: 65 Year
  Sex: Male
  Weight: 84 kg

DRUGS (2)
  1. REBIF [Suspect]
     Active Substance: INTERFERON BETA-1A
     Indication: CORONAVIRUS INFECTION
     Route: 058
     Dates: start: 20200325, end: 20200330
  2. KALETRA [Suspect]
     Active Substance: LOPINAVIR\RITONAVIR
     Indication: CORONAVIRUS INFECTION
     Dosage: 10 ML SNG (UNSPECIFIED)
     Dates: start: 20200325, end: 20200403

REACTIONS (2)
  - Venous thrombosis limb [Unknown]
  - Blood bilirubin increased [Unknown]

NARRATIVE: CASE EVENT DATE: 20200330
